FAERS Safety Report 9621491 (Version 1)
Quarter: 2013Q4

REPORT INFORMATION
  Report Type: Spontaneous
  Country: US (occurrence: None)
  Receive Date: 20131011
  Receipt Date: 20131011
  Transmission Date: 20140711
  Serious: Yes (Life-Threatening, Hospitalization)
  Sender: FDA-Public Use
  Company Number: None

PATIENT
  Age: 22 Year
  Sex: Female
  Weight: 60.5 kg

DRUGS (2)
  1. LEVAQUIN [Suspect]
     Indication: PNEUMONIA
     Dates: start: 20130806
  2. LEVAQUIN [Suspect]
     Indication: PYELONEPHRITIS
     Dates: start: 20130806

REACTIONS (2)
  - Respiratory arrest [None]
  - Cardiac arrest [None]
